FAERS Safety Report 5422133-3 (Version None)
Quarter: 2007Q3

REPORT INFORMATION
  Report Type: 
  Country: None (occurrence: None)
  Receive Date: 20070822
  Receipt Date: 20070814
  Transmission Date: 20080115
  Serious: Yes (Hospitalization, Other)
  Sender: FDA-Public Use
  Company Number: HQWYE539514AUG07

PATIENT
  Age: 40 Year
  Sex: Male

DRUGS (5)
  1. AMIODARONE HCL [Suspect]
     Indication: ATRIAL FIBRILLATION
     Route: 042
     Dates: start: 20070623, end: 20070627
  2. AMIODARONE HCL [Suspect]
     Route: 042
     Dates: start: 20070628, end: 20070629
  3. DIGOXIN [Concomitant]
     Dosage: DOSE UNKNOWN
     Route: 065
  4. PERINDOPRIL ERBUMINE [Concomitant]
     Dosage: DOSE UNKNOWN
     Route: 065
  5. CARVEDILOL [Concomitant]
     Dosage: DOSE UNKNOWN
     Route: 065

REACTIONS (10)
  - ACTIVATED PARTIAL THROMBOPLASTIN TIME PROLONGED [None]
  - ALANINE AMINOTRANSFERASE INCREASED [None]
  - ASPARTATE AMINOTRANSFERASE INCREASED [None]
  - BLOOD CREATINE PHOSPHOKINASE INCREASED [None]
  - BLOOD LACTATE DEHYDROGENASE INCREASED [None]
  - BLOOD UREA INCREASED [None]
  - LEUKOCYTOSIS [None]
  - NAUSEA [None]
  - PROTHROMBIN TIME PROLONGED [None]
  - VOMITING [None]
